FAERS Safety Report 8732933 (Version 61)
Quarter: 2019Q3

REPORT INFORMATION
  Report Type: Report from Study
  Country: CA (occurrence: CA)
  Receive Date: 20120820
  Receipt Date: 20190724
  Transmission Date: 20191005
  Serious: Yes (Hospitalization, Other)
  Sender: FDA-Public Use
  Company Number: CA-ROCHE-1101039

PATIENT
  Age: 66 Year
  Sex: Female
  Weight: 85 kg

DRUGS (22)
  1. ACTEMRA [Suspect]
     Active Substance: TOCILIZUMAB
     Route: 042
     Dates: start: 20131108
  2. ACTEMRA [Suspect]
     Active Substance: TOCILIZUMAB
     Route: 042
     Dates: start: 20150420
  3. LIPITOR [Suspect]
     Active Substance: ATORVASTATIN CALCIUM
     Indication: PRODUCT USED FOR UNKNOWN INDICATION
     Route: 065
     Dates: start: 201306
  4. TYLENOL [Concomitant]
     Active Substance: ACETAMINOPHEN
     Indication: OFF LABEL USE
  5. DELATESTRYL [Concomitant]
     Active Substance: TESTOSTERONE ENANTHATE
     Indication: OFF LABEL USE
  6. DELESTROGEN [Concomitant]
     Active Substance: ESTRADIOL VALERATE
     Indication: OFF LABEL USE
  7. ACTEMRA [Suspect]
     Active Substance: TOCILIZUMAB
     Indication: OFF LABEL USE
     Route: 042
     Dates: start: 20110510
  8. ACTEMRA [Suspect]
     Active Substance: TOCILIZUMAB
     Route: 042
     Dates: start: 20150813
  9. APO-NADOL [Suspect]
     Active Substance: NADOLOL
     Indication: PRODUCT USED FOR UNKNOWN INDICATION
     Route: 065
     Dates: start: 2013, end: 20130517
  10. ACTEMRA [Suspect]
     Active Substance: TOCILIZUMAB
     Indication: RHEUMATOID ARTHRITIS
     Route: 042
     Dates: start: 20100621
  11. ELIQUIS [Suspect]
     Active Substance: APIXABAN
     Indication: OFF LABEL USE
  12. FUROSEMIDE. [Concomitant]
     Active Substance: FUROSEMIDE
     Indication: OFF LABEL USE
  13. SYNTHROID [Concomitant]
     Active Substance: LEVOTHYROXINE SODIUM
     Dosage: DOSE INCREASED ABOUT 2 MONTHS AGO
     Route: 065
  14. XANAX [Concomitant]
     Active Substance: ALPRAZOLAM
     Indication: OFF LABEL USE
  15. LIPITOR [Suspect]
     Active Substance: ATORVASTATIN CALCIUM
     Indication: OFF LABEL USE
  16. APO-NADOL [Suspect]
     Active Substance: NADOLOL
     Indication: OFF LABEL USE
     Route: 065
     Dates: end: 201309
  17. SYNTHROID [Concomitant]
     Active Substance: LEVOTHYROXINE SODIUM
     Indication: OFF LABEL USE
     Route: 065
  18. ACTEMRA [Suspect]
     Active Substance: TOCILIZUMAB
     Route: 042
     Dates: start: 20120802
  19. EFFEXOR [Concomitant]
     Active Substance: VENLAFAXINE HYDROCHLORIDE
     Indication: OFF LABEL USE
  20. PERINDOPRIL [Suspect]
     Active Substance: PERINDOPRIL
     Indication: PRODUCT USED FOR UNKNOWN INDICATION
     Route: 065
     Dates: start: 2013, end: 20130517
  21. PERINDOPRIL [Suspect]
     Active Substance: PERINDOPRIL
     Indication: OFF LABEL USE
  22. ELIQUIS [Suspect]
     Active Substance: APIXABAN
     Indication: ANTICOAGULANT THERAPY
     Route: 048
     Dates: start: 201401

REACTIONS (63)
  - Cardiac failure congestive [Recovering/Resolving]
  - Atrial fibrillation [Recovering/Resolving]
  - Cough [Unknown]
  - Headache [Unknown]
  - Blood pressure increased [Unknown]
  - Inflammation [Not Recovered/Not Resolved]
  - Nasopharyngitis [Recovered/Resolved]
  - Musculoskeletal chest pain [Unknown]
  - Rectal haemorrhage [Recovered/Resolved]
  - Myalgia [Unknown]
  - Fatigue [Unknown]
  - Asthenia [Not Recovered/Not Resolved]
  - Fungal infection [Unknown]
  - Weight decreased [Not Recovered/Not Resolved]
  - Pain in extremity [Not Recovered/Not Resolved]
  - Sciatica [Not Recovered/Not Resolved]
  - Aphthous ulcer [Not Recovered/Not Resolved]
  - Fatigue [Unknown]
  - Ear congestion [Unknown]
  - Abdominal pain [Unknown]
  - Nasopharyngitis [Unknown]
  - Arthralgia [Not Recovered/Not Resolved]
  - Urinary tract infection [Not Recovered/Not Resolved]
  - Gait inability [Not Recovered/Not Resolved]
  - Abdominal pain [Not Recovered/Not Resolved]
  - Nasal congestion [Not Recovered/Not Resolved]
  - Heart rate decreased [Not Recovered/Not Resolved]
  - Diarrhoea [Unknown]
  - Bronchitis [Unknown]
  - Weight increased [Not Recovered/Not Resolved]
  - Cough [Unknown]
  - Stress [Not Recovered/Not Resolved]
  - Sciatica [Recovering/Resolving]
  - Infusion related reaction [Unknown]
  - Epistaxis [Unknown]
  - Blood pressure increased [Unknown]
  - Rectal haemorrhage [Recovered/Resolved]
  - Bursitis [Not Recovered/Not Resolved]
  - Deep vein thrombosis [Unknown]
  - Arthralgia [Unknown]
  - Swelling [Unknown]
  - Urticaria [Not Recovered/Not Resolved]
  - Off label use [Unknown]
  - Migraine [Unknown]
  - Pain in extremity [Unknown]
  - Dysphonia [Not Recovered/Not Resolved]
  - Bronchitis [Recovered/Resolved]
  - Peripheral swelling [Unknown]
  - Sinusitis [Recovered/Resolved]
  - Dyspnoea [Not Recovered/Not Resolved]
  - Herpes zoster [Not Recovered/Not Resolved]
  - Blood pressure fluctuation [Unknown]
  - Bacterial infection [Unknown]
  - Oral herpes [Unknown]
  - Thyroid disorder [Unknown]
  - Contusion [Unknown]
  - Pain [Unknown]
  - Blood pressure systolic increased [Unknown]
  - Chest pain [Recovering/Resolving]
  - Rash [Unknown]
  - Musculoskeletal pain [Unknown]
  - Fatigue [Not Recovered/Not Resolved]
  - Ligament sprain [Unknown]

NARRATIVE: CASE EVENT DATE: 20100803
